FAERS Safety Report 16203400 (Version 1)
Quarter: 2019Q2

REPORT INFORMATION
  Report Type: Spontaneous
  Country: BR (occurrence: BR)
  Receive Date: 20190416
  Receipt Date: 20190416
  Transmission Date: 20190711
  Serious: Yes (Other)
  Sender: FDA-Public Use
  Company Number: BR-GLAXOSMITHKLINE-BR2019GSK067990

PATIENT
  Age: 17 Year
  Sex: Female

DRUGS (4)
  1. AMOXICILLIN + CLAVULANATE K [Suspect]
     Active Substance: AMOXICILLIN\CLAVULANATE POTASSIUM
     Indication: PRODUCT USED FOR UNKNOWN INDICATION
     Dosage: UNK
  2. ZINNAT [Suspect]
     Active Substance: CEFUROXIME
     Indication: EAR INFECTION
     Dosage: UNK UNK, BID
  3. ZINNAT [Suspect]
     Active Substance: CEFUROXIME
     Indication: EAR INFECTION
     Dosage: UNK
  4. ZINNAT [Suspect]
     Active Substance: CEFUROXIME
     Indication: SINUSITIS

REACTIONS (11)
  - Product storage error [Unknown]
  - Rhinorrhoea [Unknown]
  - Painful respiration [Unknown]
  - Poor quality product administered [Unknown]
  - Bedridden [Unknown]
  - Productive cough [Unknown]
  - Drug hypersensitivity [Unknown]
  - Pneumonia [Unknown]
  - Therapeutic product effect decreased [Unknown]
  - Sinusitis [Unknown]
  - Pyrexia [Unknown]
